FAERS Safety Report 4642751-X (Version None)
Quarter: 2005Q2

REPORT INFORMATION
  Report Type: 
  Country: None (occurrence: None)
  Receive Date: 20050422
  Receipt Date: 20050419
  Transmission Date: 20051028
  Serious: Yes (Other)
  Sender: FDA-Public Use
  Company Number: PHNU2005DE01675

PATIENT
  Age: 16 Year
  Sex: Male

DRUGS (2)
  1. LEPONEX / CLOZARIL (CLOZAPINE) [Suspect]
     Indication: PSYCHOTIC DISORDER
     Dosage: 150 MG/DAY
     Route: 048
     Dates: start: 20050317, end: 20050418
  2. RISPERDAL [Concomitant]
     Dosage: 6 MG/DAY
     Route: 048
     Dates: end: 20050418

REACTIONS (5)
  - ECHOCARDIOGRAM ABNORMAL [None]
  - FATIGUE [None]
  - HYPERTENSIVE CRISIS [None]
  - VENTRICULAR HYPERTROPHY [None]
  - WEIGHT INCREASED [None]
